FAERS Safety Report 4685768-1 (Version None)
Quarter: 2005Q2

REPORT INFORMATION
  Report Type: 
  Country: None (occurrence: None)
  Receive Date: 20050607
  Receipt Date: 20050607
  Transmission Date: 20051028
  Serious: Yes (Hospitalization)
  Sender: FDA-Public Use
  Company Number: None

PATIENT
  Age: 72 Year
  Sex: Male
  Weight: 45 kg

DRUGS (1)
  1. TERIPARATIDE  (LIKELY FORTEO TM) [Suspect]
     Dosage: PTA      (THERAPY DATES:  PTA)

REACTIONS (4)
  - ATRIAL FIBRILLATION [None]
  - MALAISE [None]
  - ORAL INTAKE REDUCED [None]
  - SYNCOPE [None]
